FAERS Safety Report 18987948 (Version 2)
Quarter: 2021Q1

REPORT INFORMATION
  Report Type: Spontaneous
  Country: US (occurrence: US)
  Receive Date: 20210309
  Receipt Date: 20210329
  Transmission Date: 20210420
  Serious: No
  Sender: FDA-Public Use
  Company Number: US-ASTRAZENECA-2021A077989

PATIENT
  Age: 28925 Day
  Sex: Female
  Weight: 65.8 kg

DRUGS (2)
  1. JARDIANCE [Concomitant]
     Active Substance: EMPAGLIFLOZIN
  2. BYDUREON BCISE [Suspect]
     Active Substance: EXENATIDE
     Indication: TYPE 2 DIABETES MELLITUS
     Route: 058

REACTIONS (7)
  - Injection site mass [Unknown]
  - Incorrect dose administered by device [Unknown]
  - Incorrect disposal of product [Unknown]
  - Product use issue [Unknown]
  - Blood glucose increased [Not Recovered/Not Resolved]
  - Injection site extravasation [Unknown]
  - Intentional device misuse [Unknown]
